FAERS Safety Report 21725342 (Version 6)
Quarter: 2023Q1

REPORT INFORMATION
  Report Type: Spontaneous
  Country: JP (occurrence: JP)
  Receive Date: 20221214
  Receipt Date: 20230215
  Transmission Date: 20230417
  Serious: Yes (Death, Hospitalization, Other)
  Sender: FDA-Public Use
  Company Number: JP-ONO-2022JP030990

PATIENT
  Age: 59 Year
  Sex: Male

DRUGS (3)
  1. YERVOY [Suspect]
     Active Substance: IPILIMUMAB
     Indication: Oesophageal carcinoma recurrent
     Route: 041
     Dates: start: 20221017, end: 20221017
  2. OPDIVO [Suspect]
     Active Substance: NIVOLUMAB
     Indication: Oesophageal carcinoma recurrent
     Route: 041
     Dates: start: 20221017, end: 20221017
  3. ELIQUIS [Suspect]
     Active Substance: APIXABAN
     Indication: Venous thrombosis
     Route: 048
     Dates: start: 20220929

REACTIONS (3)
  - Multiple organ dysfunction syndrome [Fatal]
  - Hepatic failure [Fatal]
  - Off label use [Unknown]

NARRATIVE: CASE EVENT DATE: 20221027
